FAERS Safety Report 8854503 (Version 1)
Quarter: 2012Q4

REPORT INFORMATION
  Report Type: 
  Country: BR (occurrence: BR)
  Receive Date: 20121023
  Receipt Date: 20121023
  Transmission Date: 20130627
  Serious: Yes (Other)
  Sender: FDA-Public Use
  Company Number: BR-PFIZER INC-2012260806

PATIENT
  Age: 55 Year
  Sex: Male

DRUGS (1)
  1. ALDACTONE [Suspect]
     Indication: CARDIAC DISORDER
     Dosage: 50 mg (one tablet), every 8 hours
     Route: 048

REACTIONS (2)
  - Infarction [Unknown]
  - Infarction [Unknown]
